FAERS Safety Report 5047830-3 (Version None)
Quarter: 2006Q3

REPORT INFORMATION
  Report Type: 
  Country: None (occurrence: None)
  Receive Date: 20060705
  Receipt Date: 20060327
  Transmission Date: 20061208
  Serious: Yes (Death)
  Sender: FDA-Public Use
  Company Number: 2006BH011483

PATIENT
  Age: 58 Year
  Sex: Male

DRUGS (1)
  1. DIANEAL [Suspect]
     Indication: DIALYSIS
     Dosage: IP
     Route: 033

REACTIONS (3)
  - CARDIAC FAILURE CONGESTIVE [None]
  - MEDICAL DEVICE COMPLICATION [None]
  - SEPSIS [None]
